FAERS Safety Report 4476506-6 (Version None)
Quarter: 2004Q4

REPORT INFORMATION
  Report Type: 
  Country: None (occurrence: None)
  Receive Date: 20041013
  Receipt Date: 20040929
  Transmission Date: 20050328
  Serious: Yes (Hospitalization, Other)
  Sender: FDA-Public Use
  Company Number: US_0406103675

PATIENT
  Sex: Female
  Weight: 38.5557 kg

DRUGS (7)
  1. ZYPREXA [Suspect]
     Dosage: 40 MG AT BEDTIME
     Dates: start: 20011120, end: 20040507
  2. ABILIFY [Concomitant]
  3. WELLBUTRIN SR [Concomitant]
  4. PAXIL [Concomitant]
  5. ANTABUSE [Concomitant]
  6. SPIRONOLACTONE [Concomitant]
  7. LITHIUM CARBONATE [Concomitant]

REACTIONS (21)
  - AMNESIA [None]
  - ANGER [None]
  - ANXIETY [None]
  - APATHY [None]
  - BLOOD GLUCOSE FLUCTUATION [None]
  - DEPRESSED LEVEL OF CONSCIOUSNESS [None]
  - DEPRESSION [None]
  - DISEASE RECURRENCE [None]
  - DISTURBANCE IN ATTENTION [None]
  - DIVERTICULITIS [None]
  - DIZZINESS [None]
  - FATIGUE [None]
  - FLAT AFFECT [None]
  - HEADACHE [None]
  - HYPERPHAGIA [None]
  - HYPOTENSION [None]
  - LOSS OF CONSCIOUSNESS [None]
  - MUSCLE CRAMP [None]
  - MUSCLE TWITCHING [None]
  - NIGHTMARE [None]
  - WEIGHT INCREASED [None]
